FAERS Safety Report 8573011-2 (Version None)
Quarter: 2012Q3

REPORT INFORMATION
  Report Type: 
  Country: None (occurrence: None)
  Receive Date: 20120806
  Receipt Date: 20120802
  Transmission Date: 20120928
  Serious: Yes (Life-Threatening)
  Sender: FDA-Public Use
  Company Number: GB-PFIZER INC-2012181133

PATIENT
  Age: 25 Year
  Sex: Female

DRUGS (5)
  1. CODEINE PHOSPHATE [Concomitant]
     Dosage: UNK
  2. OLANZAPINE [Concomitant]
     Dosage: UNK
  3. METHADON HCL TAB [Concomitant]
     Dosage: UNK
  4. PROPRANOLOL [Concomitant]
     Dosage: UNK
  5. VENLAFAXINE HCL [Suspect]
     Indication: DEPRESSION
     Dosage: 150 MG, 2X/DAY
     Route: 048
     Dates: start: 20120501, end: 20120710

REACTIONS (2)
  - HEADACHE [None]
  - GRAND MAL CONVULSION [None]
